FAERS Safety Report 6637767-8 (Version None)
Quarter: 2010Q1

REPORT INFORMATION
  Report Type: 
  Country: None (occurrence: None)
  Receive Date: 20100301
  Receipt Date: 20091106
  Transmission Date: 20100710
  Serious: Yes (Life-Threatening)
  Sender: FDA-Public Use
  Company Number: 002380

PATIENT
  Sex: Female
  Weight: 53.6 kg

DRUGS (5)
  1. LACOSAMIDE [Suspect]
     Indication: CONVULSION
     Dosage: 200 MG BID ORAL; SEE IMAGE
     Route: 048
     Dates: start: 20090101, end: 20090101
  2. LACOSAMIDE [Suspect]
     Indication: CONVULSION
     Dosage: 200 MG BID ORAL; SEE IMAGE
     Route: 048
     Dates: start: 20090101
  3. KEPPRA [Suspect]
     Indication: CONVULSION
     Dosage: 1500 MG TID ORA; SEE IMAGE
     Route: 048
     Dates: end: 20090101
  4. KEPPRA [Suspect]
     Indication: CONVULSION
     Dosage: 1500 MG TID ORA; SEE IMAGE
     Route: 048
     Dates: start: 20090101
  5. LYRICA [Concomitant]

REACTIONS (3)
  - ACNE [None]
  - DEPRESSION SUICIDAL [None]
  - FATIGUE [None]
